FAERS Safety Report 9457711 (Version 5)
Quarter: 2015Q4

REPORT INFORMATION
  Report Type: Report from Study
  Country: US (occurrence: US)
  Receive Date: 20130814
  Receipt Date: 20151030
  Transmission Date: 20160305
  Serious: Yes (Other)
  Sender: FDA-Public Use
  Company Number: US-ROCHE-1260489

PATIENT
  Age: 64 Year
  Sex: Female

DRUGS (11)
  1. AVASTIN [Suspect]
     Active Substance: BEVACIZUMAB
     Indication: DIABETIC RETINOPATHY
  2. NOVOLOG [Concomitant]
     Active Substance: INSULIN ASPART
     Indication: DIABETES MELLITUS
     Route: 030
     Dates: start: 20130708
  3. LEVEMIR [Concomitant]
     Active Substance: INSULIN DETEMIR
  4. LIPITOR [Concomitant]
     Active Substance: ATORVASTATIN CALCIUM
     Route: 048
     Dates: start: 20130104
  5. LUCENTIS [Suspect]
     Active Substance: RANIBIZUMAB
     Indication: DIABETIC RETINAL OEDEMA
     Route: 050
     Dates: start: 20130708
  6. BETADINE [Concomitant]
     Active Substance: POVIDONE-IODINE
  7. AVASTIN [Suspect]
     Active Substance: BEVACIZUMAB
     Indication: DIABETIC RETINAL OEDEMA
     Dosage: BOTH EYES
     Route: 065
  8. LIDOCAINE GEL [Concomitant]
  9. LUCENTIS [Suspect]
     Active Substance: RANIBIZUMAB
     Indication: DIABETIC RETINOPATHY
     Route: 050
     Dates: start: 20130807, end: 20130807
  10. MYDRIACYL [Concomitant]
     Active Substance: TROPICAMIDE
     Route: 065
  11. NEO-SYNEPHRINE [Concomitant]
     Active Substance: PHENYLEPHRINE HYDROCHLORIDE
     Route: 065

REACTIONS (17)
  - Vitreous floaters [Unknown]
  - Retinal haemorrhage [Unknown]
  - Conjunctival haemorrhage [Unknown]
  - Ocular hyperaemia [Recovered/Resolved]
  - Macular oedema [Unknown]
  - Retinal aneurysm [Unknown]
  - Ophthalmological examination abnormal [Not Recovered/Not Resolved]
  - Vitreous haemorrhage [Recovering/Resolving]
  - Eye pain [Unknown]
  - Retinal scar [Unknown]
  - Vision blurred [Unknown]
  - Ocular hyperaemia [Unknown]
  - Visual impairment [Not Recovered/Not Resolved]
  - Asthenopia [Unknown]
  - Diabetic retinopathy [Not Recovered/Not Resolved]
  - Retinal exudates [Unknown]
  - Spider naevus [Unknown]

NARRATIVE: CASE EVENT DATE: 20130708
